FAERS Safety Report 9069679 (Version 1)
Quarter: 2013Q1

REPORT INFORMATION
  Report Type: Spontaneous
  Country: US (occurrence: US)
  Receive Date: 20130215
  Receipt Date: 20130215
  Transmission Date: 20140127
  Serious: Yes (Other)
  Sender: FDA-Public Use
  Company Number: US-PFIZER INC-2013056293

PATIENT
  Age: 19 Month
  Sex: Female

DRUGS (10)
  1. OXYMETAZOLINE [Suspect]
     Dosage: TWO SPRAYS OF OXYMETAZOLINE NASAL SPRAY (0.05%)
     Route: 045
  2. PHENYLEPHRINE HCL [Interacting]
     Dosage: 2.5% PHENYLEPHRINE (1 DROP FOR EACH EYE)
     Route: 047
  3. DIPHENHYDRAMINE [Interacting]
     Indication: HYPOTENSION
     Dosage: 10 MG, UNK
     Route: 042
  4. ALBUTEROL [Interacting]
     Indication: BRONCHOSPASM
     Dosage: 180 UG, UNK
     Route: 055
  5. MELPHALAN [Concomitant]
     Indication: RETINOBLASTOMA
     Dosage: TOTAL DOSE OF 3 MG ADMINISTERED OVER 30 MINUTES
     Route: 013
  6. MELPHALAN [Concomitant]
     Indication: LEUKOCORIA
  7. ASPIRIN [Concomitant]
     Indication: THROMBOSIS
     Dosage: 10 MG/KG, UNK
  8. HEPARIN [Concomitant]
     Dosage: 75 UNITS/KG, UNK
     Route: 042
  9. HYDROCORTISONE [Concomitant]
     Indication: HYPOTENSION
     Dosage: 10 MG, UNK
     Route: 042
  10. DEXAMETHASONE [Concomitant]
     Indication: OCULAR VASCULITIS
     Dosage: 1 MG, UNK
     Route: 042

REACTIONS (4)
  - Drug interaction [Recovered/Resolved]
  - Cerebral vasoconstriction [Recovered/Resolved]
  - Neurotoxicity [Recovered/Resolved]
  - Hypertension [Recovered/Resolved]
